FAERS Safety Report 9518379 (Version 1)
Quarter: 2013Q1

REPORT INFORMATION
  Report Type: Spontaneous
  Country: US (occurrence: None)
  Receive Date: 20130305
  Receipt Date: 20130305
  Transmission Date: 20140127
  Serious: Yes (Other)
  Sender: FDA-Public Use
  Company Number: 163-21880-12010252

PATIENT
  Sex: 0

DRUGS (4)
  1. REVLIMID (LENALIDOMIDE) (CAPSULES) [Suspect]
     Indication: CHRONIC LYMPHOCYTIC LEUKAEMIA REFRACTORY
     Dosage: 20-10MG, PER DAY, 3 WKS ON, 3 WKS OFF, 42D CYCLE, PO
     Route: 048
  2. ALLOPURINOL (ALLOPURINOL) (UNKNOWN) [Concomitant]
  3. IBUPROFEN (IBUPROFEN) (UNKNOWN) [Concomitant]
  4. CORTICOSTEROIDS (CORTICOSTEROIDS) (UNKNOWN) [Concomitant]

REACTIONS (8)
  - Bone marrow failure [None]
  - Thrombocytopenia [None]
  - Neutropenia [None]
  - Infection [None]
  - Tumour flare [None]
  - Rash [None]
  - Fatigue [None]
  - Muscle spasms [None]
